FAERS Safety Report 6714508-7 (Version None)
Quarter: 2010Q2

REPORT INFORMATION
  Report Type: 
  Country: None (occurrence: None)
  Receive Date: 20100506
  Receipt Date: 20100426
  Transmission Date: 20101027
  Serious: Yes (Disabling)
  Sender: FDA-Public Use
  Company Number: GB-WATSON-2010-06156

PATIENT

DRUGS (4)
  1. SIMVASTATIN (WATSON LABORATORIES) [Suspect]
     Indication: BLOOD CHOLESTEROL INCREASED
     Dosage: 40 MG, UNK
     Route: 048
     Dates: start: 20080409, end: 20100305
  2. BETAHISTINE [Concomitant]
     Indication: VERTIGO
     Dosage: 16 MG, UNK
     Route: 048
     Dates: start: 20080409, end: 20080609
  3. CEPHALEXIN [Concomitant]
     Indication: DRUG USE FOR UNKNOWN INDICATION
     Dosage: 250 MG, UNK
     Route: 048
     Dates: start: 20080409, end: 20080416
  4. CYANOCOBALAMIN [Concomitant]
     Indication: DRUG USE FOR UNKNOWN INDICATION
     Dosage: 1000 MCG, UNK
     Route: 058
     Dates: start: 20080409

REACTIONS (1)
  - AMNESIA [None]
